FAERS Safety Report 7352681-0 (Version None)
Quarter: 2011Q1

REPORT INFORMATION
  Report Type: 
  Country: None (occurrence: None)
  Receive Date: 20110315
  Receipt Date: 20110308
  Transmission Date: 20110831
  Serious: Yes (Hospitalization, Other)
  Sender: FDA-Public Use
  Company Number: US-PFIZER INC-2008154413

PATIENT
  Sex: Female

DRUGS (3)
  1. XALATAN [Suspect]
     Dosage: UNK
     Route: 061
     Dates: start: 20070101
  2. CELEBREX [Concomitant]
     Dosage: UNK
  3. TRAVATAN [Suspect]
     Dosage: UNK
     Dates: start: 20080101, end: 20080101

REACTIONS (5)
  - RASH [None]
  - COLLAPSE OF LUNG [None]
  - PAIN [None]
  - OCULAR HYPERAEMIA [None]
  - VISUAL ACUITY REDUCED [None]
